FAERS Safety Report 8902719 (Version 4)
Quarter: 2013Q1

REPORT INFORMATION
  Report Type: Spontaneous
  Country: CA (occurrence: CA)
  Receive Date: 20121112
  Receipt Date: 20130328
  Transmission Date: 20140127
  Serious: Yes (Other)
  Sender: FDA-Public Use
  Company Number: PHHY2012CA082011

PATIENT
  Age: 51 Year
  Sex: Female

DRUGS (8)
  1. GILENYA [Suspect]
     Indication: RELAPSING-REMITTING MULTIPLE SCLEROSIS
     Dosage: 0.5 MG, QD
     Route: 048
     Dates: start: 20120918
  2. NEURONTIN [Concomitant]
     Dosage: 300 MG, TID
  3. WELLBUTRIN XL [Concomitant]
     Dosage: 300 MG, QD
  4. VENLAFAXINE [Concomitant]
     Dosage: 300 MG, BID
  5. SYNTHROID [Concomitant]
     Dosage: 0.062 MG, UNK
  6. SYNTHROID [Concomitant]
     Dosage: 0.088 MG, UNK
  7. MINESTRIN [Concomitant]
     Dosage: 1 DF, QD
  8. COLACE [Concomitant]
     Dosage: 0.5 DF, QD

REACTIONS (12)
  - Blood thyroid stimulating hormone increased [Recovered/Resolved]
  - Panic attack [Recovered/Resolved]
  - Dizziness [Recovered/Resolved]
  - Micturition urgency [Recovered/Resolved]
  - Pollakiuria [Recovered/Resolved]
  - Nightmare [Recovered/Resolved]
  - Chest discomfort [Recovered/Resolved]
  - Chest pain [Recovered/Resolved]
  - Fatigue [Recovered/Resolved]
  - Blood pressure increased [Recovered/Resolved]
  - Headache [Recovered/Resolved]
  - Asthenia [Recovered/Resolved]
